FAERS Safety Report 18294391 (Version 1)
Quarter: 2020Q3

REPORT INFORMATION
  Report Type: Spontaneous
  Country: US (occurrence: US)
  Receive Date: 20200922
  Receipt Date: 20200922
  Transmission Date: 20201103
  Serious: No
  Sender: FDA-Public Use
  Company Number: None

PATIENT
  Age: 53 Year
  Sex: Male

DRUGS (6)
  1. LISINOPRIL 10MG TAB [Concomitant]
     Active Substance: LISINOPRIL
     Dates: start: 20200726
  2. AMLODIPINE 10MG TAB [Concomitant]
     Dates: start: 20200327
  3. MONTEKULAST 10MG TAB [Concomitant]
     Dates: start: 20200609
  4. COSENTYX [Suspect]
     Active Substance: SECUKINUMAB
     Indication: PSORIASIS
     Dosage: ?          OTHER FREQUENCY:EVERY 4 WEEKS;?
     Route: 058
  5. BACLOFEN 10MG TAB [Concomitant]
     Dates: start: 20200820
  6. TIZANIDINE 4MG CAP [Concomitant]
     Dates: start: 20200813

REACTIONS (2)
  - Cerebrovascular accident [None]
  - Condition aggravated [None]

NARRATIVE: CASE EVENT DATE: 20200921
